FAERS Safety Report 10449824 (Version 2)
Quarter: 2014Q4

REPORT INFORMATION
  Report Type: Spontaneous
  Country: GB (occurrence: GB)
  Receive Date: 20140912
  Receipt Date: 20141020
  Transmission Date: 20150528
  Serious: Yes (Hospitalization, Other)
  Sender: FDA-Public Use
  Company Number: GB-ASTRAZENECA-2014SE65638

PATIENT
  Age: 53 Year
  Sex: Male

DRUGS (3)
  1. LIGNOCAINE WITH ADRENALINE [Suspect]
     Active Substance: EPINEPHRINE BITARTRATE\LIDOCAINE HYDROCHLORIDE
     Indication: LOCAL ANAESTHESIA
     Route: 004
  2. SEPTANEST [Suspect]
     Active Substance: ARTICAINE HYDROCHLORIDE\EPINEPHRINE BITARTRATE
     Indication: LOCAL ANAESTHESIA
     Route: 004
  3. ALCOHOL. [Concomitant]
     Active Substance: ALCOHOL

REACTIONS (4)
  - Paranoia [Unknown]
  - Blood pressure increased [Unknown]
  - Hallucination [Unknown]
  - Psychotic disorder [Unknown]

NARRATIVE: CASE EVENT DATE: 20121231
